FAERS Safety Report 20091822 (Version 2)
Quarter: 2021Q4

REPORT INFORMATION
  Report Type: Spontaneous
  Country: ES (occurrence: ES)
  Receive Date: 20211119
  Receipt Date: 20211201
  Transmission Date: 20220303
  Serious: Yes (Hospitalization)
  Sender: FDA-Public Use
  Company Number: ES-SA-SAC20211103001302

PATIENT
  Age: 83 Year
  Sex: Male
  Weight: 96 kg

DRUGS (22)
  1. PALBOCICLIB [Suspect]
     Active Substance: PALBOCICLIB
     Indication: Breast cancer stage IV
     Dosage: 125 MG, QD
     Route: 048
  2. PALBOCICLIB [Suspect]
     Active Substance: PALBOCICLIB
     Dosage: 125 MG, QD
     Route: 048
     Dates: start: 20210804, end: 20210825
  3. GOSERELIN [Suspect]
     Active Substance: GOSERELIN
     Indication: Breast cancer stage IV
     Dosage: 3.6 MG, QM
     Route: 058
  4. GOSERELIN [Suspect]
     Active Substance: GOSERELIN
     Dosage: 3.6 MG, QM
     Route: 058
     Dates: start: 20210804, end: 20210804
  5. AMCENESTRANT [Suspect]
     Active Substance: AMCENESTRANT
     Indication: Breast cancer stage IV
     Dosage: 2.5 MG, QD
     Route: 048
  6. AMCENESTRANT [Suspect]
     Active Substance: AMCENESTRANT
     Dosage: 2.5 MG, QD
     Route: 048
     Dates: start: 20210804, end: 20210901
  7. AMCENESTRANT [Suspect]
     Active Substance: AMCENESTRANT
     Dosage: 200 MG, QD
     Route: 048
     Dates: start: 20210804, end: 20210901
  8. AMCENESTRANT [Suspect]
     Active Substance: AMCENESTRANT
     Dosage: 200 MG, QD
     Route: 048
  9. OMEPRAZOLE [Concomitant]
     Active Substance: OMEPRAZOLE
     Indication: Prophylaxis
     Dosage: UNK
     Route: 048
     Dates: start: 20210614
  10. MOVICOL [Concomitant]
     Active Substance: POLYETHYLENE GLYCOL 3350\POTASSIUM CHLORIDE\SODIUM BICARBONATE\SODIUM CHLORIDE
     Indication: Prophylaxis
     Dosage: UNK
     Route: 048
     Dates: start: 20210804
  11. HERBALS\SAW PALMETTO [Concomitant]
     Active Substance: HERBALS\SAW PALMETTO
     Indication: Prophylaxis
     Dosage: UNK
     Route: 048
     Dates: start: 20200707
  12. PREGABALIN [Concomitant]
     Active Substance: PREGABALIN
     Indication: Prophylaxis
     Dosage: UNK
     Route: 048
     Dates: start: 20210730
  13. FUROSEMIDE [Concomitant]
     Active Substance: FUROSEMIDE
     Indication: Prophylaxis
     Dosage: UNK
     Route: 048
     Dates: start: 20210728
  14. KETAZOLAM [Concomitant]
     Active Substance: KETAZOLAM
     Indication: Prophylaxis
     Dosage: UNK
     Route: 048
     Dates: start: 20210802
  15. NALOXONE [Concomitant]
     Active Substance: NALOXONE
     Indication: Prophylaxis
     Dosage: UNK
     Route: 048
     Dates: start: 20210729
  16. DEXKETOPROFEN [Concomitant]
     Active Substance: DEXKETOPROFEN
     Indication: Prophylaxis
     Dosage: UNK
     Route: 048
     Dates: start: 20210708
  17. FENTANYL [Concomitant]
     Active Substance: FENTANYL
     Indication: Prophylaxis
     Dosage: UNK
     Route: 048
     Dates: start: 20210808
  18. ACETAMINOPHEN [Concomitant]
     Active Substance: ACETAMINOPHEN
     Indication: Prophylaxis
     Dosage: UNK
     Route: 048
     Dates: start: 20210614
  19. TINZAPARIN SODIUM [Concomitant]
     Active Substance: TINZAPARIN SODIUM
     Indication: Prophylaxis
     Dosage: UNK
     Route: 058
     Dates: start: 20210802
  20. DEXAMETHASONE [Concomitant]
     Active Substance: DEXAMETHASONE
     Indication: Prophylaxis
     Dosage: UNK
     Route: 048
     Dates: start: 20210802
  21. OXYCODONE [Concomitant]
     Active Substance: OXYCODONE
     Indication: Prophylaxis
     Dosage: UNK
     Route: 048
     Dates: start: 20210729
  22. HERBALS\SENNOSIDES [Concomitant]
     Active Substance: HERBALS\SENNOSIDES
     Dosage: UNK
     Route: 048
     Dates: start: 20210802

REACTIONS (1)
  - Abdominal pain [Recovered/Resolved]

NARRATIVE: CASE EVENT DATE: 20211029
